FAERS Safety Report 7530957-1 (Version None)
Quarter: 2011Q2

REPORT INFORMATION
  Report Type: 
  Country: None (occurrence: None)
  Receive Date: 20110531
  Receipt Date: 20110516
  Transmission Date: 20111010
  Serious: Yes (Hospitalization, Congenital Anomaly, Other)
  Sender: FDA-Public Use
  Company Number: 2011MA005979

PATIENT
  Age: 1 Day
  Sex: Female

DRUGS (2)
  1. LORAZEPAM [Suspect]
  2. FLUOXETINE HCL [Concomitant]

REACTIONS (15)
  - GASTROINTESTINAL NECROSIS [None]
  - TREMOR [None]
  - CONGENITAL PNEUMONIA [None]
  - MULTI-ORGAN DISORDER [None]
  - KLEBSIELLA INFECTION [None]
  - CULTURE URINE POSITIVE [None]
  - INTRAUTERINE INFECTION [None]
  - DRUG WITHDRAWAL SYNDROME NEONATAL [None]
  - FLOPPY INFANT [None]
  - AGITATION NEONATAL [None]
  - HYPERTONIA [None]
  - MATERNAL DRUGS AFFECTING FOETUS [None]
  - HYPERTONIA NEONATAL [None]
  - LUNG DISORDER [None]
  - SECRETION DISCHARGE [None]
